FAERS Safety Report 6240046-4 (Version None)
Quarter: 2009Q2

REPORT INFORMATION
  Report Type: 
  Country: None (occurrence: None)
  Receive Date: 20090623
  Receipt Date: 20090617
  Transmission Date: 20091009
  Serious: Yes (Other)
  Sender: FDA-Public Use
  Company Number: ES-ROCHE-638795

PATIENT
  Age: 53 Year
  Sex: Female

DRUGS (5)
  1. BONIVA [Suspect]
     Indication: OSTEOPOROSIS
     Route: 048
     Dates: start: 20080501, end: 20080601
  2. OMEPRAZOL [Concomitant]
     Route: 048
     Dates: end: 20080601
  3. OMEPRAZOL [Concomitant]
     Dosage: INDICATION: GASTRIC ACID HYPERSECRETION
     Route: 048
     Dates: start: 20080701
  4. DIAZEPAM [Concomitant]
     Route: 048
     Dates: start: 20080701
  5. ALMAX [Concomitant]
     Dosage: DRUG REPORTED: ALMAX FORTE, DOSAGE REPORTED: FOUR DOSES PER DAY
     Route: 048
     Dates: start: 20080701

REACTIONS (1)
  - HYPERCHLORHYDRIA [None]
